FAERS Safety Report 25013431 (Version 1)
Quarter: 2025Q1

REPORT INFORMATION
  Report Type: Spontaneous
  Country: US (occurrence: US)
  Receive Date: 20250226
  Receipt Date: 20250226
  Transmission Date: 20250409
  Serious: No
  Sender: ALEXION PHARMACEUTICALS
  Company Number: US-AstraZeneca-CH-00811389A

PATIENT

DRUGS (1)
  1. SEROQUEL [Suspect]
     Active Substance: QUETIAPINE FUMARATE
     Route: 065

REACTIONS (8)
  - Dizziness [Unknown]
  - Dry mouth [Unknown]
  - Drug ineffective [Unknown]
  - Limb discomfort [Unknown]
  - General symptom [Unknown]
  - Therapeutic product effect variable [Unknown]
  - Insomnia [Unknown]
  - Visual impairment [Unknown]
